FAERS Safety Report 6978603-X (Version None)
Quarter: 2010Q3

REPORT INFORMATION
  Report Type: 
  Country: None (occurrence: None)
  Receive Date: 20100913
  Receipt Date: 20100907
  Transmission Date: 20110219
  Serious: Yes (Death, Hospitalization)
  Sender: FDA-Public Use
  Company Number: BR-ROCHE-715483

PATIENT
  Sex: Male

DRUGS (7)
  1. MYCOPHENOLATE MOFETIL [Suspect]
     Route: 065
     Dates: start: 20050925, end: 20100706
  2. CYCLOSPORINE [Suspect]
     Route: 048
     Dates: start: 20051001
  3. CYCLOSPORINE [Suspect]
     Route: 048
     Dates: start: 20091204, end: 20100713
  4. CYCLOSPORINE [Suspect]
     Route: 048
     Dates: start: 20100714, end: 20100714
  5. CYCLOSPORINE [Suspect]
     Route: 048
     Dates: start: 20100715, end: 20100715
  6. PREDNISONE [Suspect]
     Route: 065
     Dates: start: 20050925
  7. PREDNISONE [Suspect]
     Route: 065
     Dates: start: 20100706, end: 20100816

REACTIONS (15)
  - ANAEMIA [None]
  - B-CELL LYMPHOMA [None]
  - CANDIDIASIS [None]
  - CYTOMEGALOVIRUS INFECTION [None]
  - FEBRILE NEUTROPENIA [None]
  - GENERAL PHYSICAL HEALTH DETERIORATION [None]
  - HAEMODYNAMIC INSTABILITY [None]
  - KLEBSIELLA INFECTION [None]
  - PULMONARY MYCOSIS [None]
  - SEPTIC SHOCK [None]
  - STAPHYLOCOCCAL BACTERAEMIA [None]
  - STENOTROPHOMONAS INFECTION [None]
  - THROMBOCYTOPENIA [None]
  - URINARY TRACT INFECTION [None]
  - URINARY TRACT INFECTION FUNGAL [None]
